FAERS Safety Report 7563816-9 (Version None)
Quarter: 2011Q2

REPORT INFORMATION
  Report Type: 
  Country: None (occurrence: None)
  Receive Date: 20110621
  Receipt Date: 20110621
  Transmission Date: 20111010
  Serious: No
  Sender: FDA-Public Use
  Company Number: None

PATIENT
  Age: 14 Year
  Sex: Female
  Weight: 92.9 kg

DRUGS (1)
  1. EXENATIDE 10 MCG AMYLIN PHARMACEUTICALS, INC. AND LILLY USA, [Suspect]
     Indication: OBESITY
     Dosage: 10 MCG BID SUBQ
     Route: 058
     Dates: start: 20100917

REACTIONS (1)
  - CHOLELITHIASIS [None]
